FAERS Safety Report 13567036 (Version 1)
Quarter: 2017Q2

REPORT INFORMATION
  Report Type: Spontaneous
  Country: US (occurrence: US)
  Receive Date: 20170519
  Receipt Date: 20170519
  Transmission Date: 20170830
  Serious: No
  Sender: FDA-Public Use
  Company Number: None

PATIENT
  Age: 39 Year
  Sex: Female

DRUGS (1)
  1. COSENTYX [Suspect]
     Active Substance: SECUKINUMAB

REACTIONS (5)
  - Abortion spontaneous [None]
  - Pregnancy [None]
  - Therapy cessation [None]
  - Pneumonia [None]
  - Fatigue [None]

NARRATIVE: CASE EVENT DATE: 20170115
